FAERS Safety Report 8208237-0 (Version None)
Quarter: 2012Q1

REPORT INFORMATION
  Report Type: 
  Country: None (occurrence: None)
  Receive Date: 20120314
  Receipt Date: 20120309
  Transmission Date: 20120608
  Serious: Yes (Other)
  Sender: FDA-Public Use
  Company Number: PHHY2012MX021560

PATIENT
  Sex: Female

DRUGS (1)
  1. EXFORGE [Suspect]
     Indication: HYPERTENSION
     Dosage: 1 TABLET (160 MG/10 MG) PER DAY
     Dates: start: 20111001, end: 20120201

REACTIONS (2)
  - ANAEMIA [None]
  - OEDEMA PERIPHERAL [None]
